FAERS Safety Report 7531427-7 (Version None)
Quarter: 2011Q2

REPORT INFORMATION
  Report Type: 
  Country: None (occurrence: None)
  Receive Date: 20110531
  Receipt Date: 20110519
  Transmission Date: 20111010
  Serious: Yes (Other)
  Sender: FDA-Public Use
  Company Number: 1000021144

PATIENT
  Age: 21 Year
  Sex: Female

DRUGS (2)
  1. RISPERIDONE [Suspect]
  2. ESCITALOPRAM [Suspect]
     Indication: ANXIETY
     Dosage: 20 MG (20 MG, 1 IN 1 D), ORAL
     Route: 048

REACTIONS (1)
  - OCULOGYRIC CRISIS [None]
